FAERS Safety Report 11313127 (Version 1)
Quarter: 2015Q3

REPORT INFORMATION
  Report Type: Spontaneous
  Country: US (occurrence: US)
  Receive Date: 20150727
  Receipt Date: 20150727
  Transmission Date: 20151125
  Serious: No
  Sender: FDA-Public Use
  Company Number: US-ABBVIE-14P-163-1283094-00

PATIENT
  Sex: Female
  Weight: 57.66 kg

DRUGS (4)
  1. ESTROSTEP [Suspect]
     Active Substance: ETHINYL ESTRADIOL\NORETHINDRONE ACETATE
     Indication: HORMONE REPLACEMENT THERAPY
     Dates: end: 201406
  2. SYNTHROID [Suspect]
     Active Substance: LEVOTHYROXINE SODIUM
     Indication: HYPOTHYROIDISM
     Dates: start: 201402, end: 201409
  3. ESTROSTEP [Suspect]
     Active Substance: ETHINYL ESTRADIOL\NORETHINDRONE ACETATE
     Dates: start: 201407
  4. FEMALE GROWTH HORMONE SUPPLEMENT [Concomitant]
     Indication: HORMONE REPLACEMENT THERAPY
     Dates: start: 201406, end: 201407

REACTIONS (4)
  - Fatigue [Not Recovered/Not Resolved]
  - Expired product administered [Recovered/Resolved]
  - Alopecia [Not Recovered/Not Resolved]
  - Blood thyroid stimulating hormone increased [Unknown]
